FAERS Safety Report 5822874-X (Version None)
Quarter: 2008Q3

REPORT INFORMATION
  Report Type: 
  Country: None (occurrence: None)
  Receive Date: 20080724
  Receipt Date: 20080724
  Transmission Date: 20090109
  Serious: Yes (Other)
  Sender: FDA-Public Use
  Company Number: None

PATIENT
  Age: 50 Year
  Sex: Male

DRUGS (2)
  1. PROZAC [Suspect]
     Indication: MAJOR DEPRESSION
     Dosage: 20 AND 40 MG DAILY ORAL MARCH AND EARLY APRIL 02
     Route: 048
     Dates: start: 20020301
  2. PROZAC [Suspect]
     Indication: MAJOR DEPRESSION
     Dosage: 20 AND 40 MG DAILY ORAL MARCH AND EARLY APRIL 02
     Route: 048
     Dates: start: 20020401

REACTIONS (6)
  - CONDITION AGGRAVATED [None]
  - DECREASED APPETITE [None]
  - DEPRESSION [None]
  - IRRITABILITY [None]
  - OBSESSIVE THOUGHTS [None]
  - THERAPEUTIC RESPONSE UNEXPECTED WITH DRUG SUBSTITUTION [None]
